FAERS Safety Report 14551854 (Version 2)
Quarter: 2018Q2

REPORT INFORMATION
  Report Type: Spontaneous
  Country: US (occurrence: US)
  Receive Date: 20180220
  Receipt Date: 20180403
  Transmission Date: 20180711
  Serious: Yes (Other)
  Sender: FDA-Public Use
  Company Number: US-PFIZER INC-2018067846

PATIENT
  Age: 47 Year
  Sex: Female

DRUGS (1)
  1. XELJANZ XR [Suspect]
     Active Substance: TOFACITINIB CITRATE
     Dosage: 11 MG, UNK

REACTIONS (9)
  - Arthralgia [Unknown]
  - Chapped lips [Unknown]
  - Insomnia [Unknown]
  - Pain in extremity [Unknown]
  - Alopecia [Unknown]
  - Arthralgia [Recovering/Resolving]
  - Neuralgia [Unknown]
  - Drug ineffective [Unknown]
  - Musculoskeletal pain [Unknown]
